FAERS Safety Report 11563175 (Version 1)
Quarter: 2015Q3

REPORT INFORMATION
  Report Type: Report from Study
  Country: NL (occurrence: NL)
  Receive Date: 20150928
  Receipt Date: 20150928
  Transmission Date: 20151125
  Serious: Yes (Other)
  Sender: FDA-Public Use
  Company Number: NL-AMGEN-NLDSL2015098573

PATIENT
  Age: 72 Year
  Sex: Male

DRUGS (12)
  1. FORMOTEROL [Concomitant]
     Active Substance: FORMOTEROL
     Dosage: UNK UNK, BID
     Dates: start: 20150105
  2. GOSERELINE [Concomitant]
     Active Substance: GOSERELIN
     Dosage: 10.8 MG, UNK
     Dates: start: 20150326
  3. CALCIUM CARBONATE W/COLECALCIFEROL [Concomitant]
     Active Substance: CALCIUM CARBONATE\CHOLECALCIFEROL
     Dosage: 1.25G/440IE (500MG CA)
     Dates: start: 20150724
  4. LIDOCAINE. [Concomitant]
     Active Substance: LIDOCAINE
     Dosage: UNK
  5. GRANISETRON [Concomitant]
     Active Substance: GRANISETRON
     Dosage: 2 MG, QD
     Dates: start: 20150813
  6. SALBUTAMOL PCH [Concomitant]
     Dosage: 100MCG/DO SPBS 200DO +INH
     Dates: start: 20150414
  7. FENTANYL. [Concomitant]
     Active Substance: FENTANYL
     Dosage: 50UG/UUR
     Dates: start: 20150710
  8. BECLOMETHASONE                     /00212602/ [Concomitant]
     Dosage: UNK UNK, BID
     Dates: start: 20150105
  9. DEXAMETHASONE. [Concomitant]
     Active Substance: DEXAMETHASONE
     Dosage: 0.5 MG, BID
     Dates: start: 20150618
  10. XGEVA [Suspect]
     Active Substance: DENOSUMAB
     Indication: PRODUCT USED FOR UNKNOWN INDICATION
     Dosage: 120 MG, Q4WK
     Route: 058
     Dates: start: 20120917
  11. OMEPRAZOL                          /00661201/ [Concomitant]
     Active Substance: OMEPRAZOLE
     Dosage: 40 MG, QD
     Dates: start: 20150414
  12. PARACETAMOL [Concomitant]
     Active Substance: ACETAMINOPHEN
     Dosage: 1000 MG, TID

REACTIONS (20)
  - Dizziness [Unknown]
  - Haemoglobin decreased [Unknown]
  - Back pain [Unknown]
  - Anal abscess [Unknown]
  - Pancytopenia [Unknown]
  - Diarrhoea [Unknown]
  - Pulmonary embolism [Unknown]
  - Neutropenia [Unknown]
  - Metastases to spine [Unknown]
  - Pneumonia [Unknown]
  - Steatohepatitis [Unknown]
  - Prostate cancer [Unknown]
  - Nausea [Unknown]
  - Metastases to bone [Unknown]
  - Enteritis [Unknown]
  - Malaise [Unknown]
  - Candida infection [Unknown]
  - Pain in extremity [Unknown]
  - Prostate cancer metastatic [Unknown]
  - Hypocalcaemia [Unknown]

NARRATIVE: CASE EVENT DATE: 20121119
